FAERS Safety Report 4510679-1 (Version None)
Quarter: 2004Q4

REPORT INFORMATION
  Report Type: 
  Country: None (occurrence: None)
  Receive Date: 20041123
  Receipt Date: 20041110
  Transmission Date: 20050328
  Serious: Yes (Other)
  Sender: FDA-Public Use
  Company Number: 2004091388

PATIENT
  Sex: Male
  Weight: 97.0698 kg

DRUGS (1)
  1. LISTERINE (MENTHOL, METHYL SALICYLATE, EUCALYPTOL, THYMOL) [Suspect]
     Indication: DENTAL DISORDER PROPHYLAXIS
     Dosage: MOUTHFUL  3-4X'S/DAY UNTIL
     Dates: start: 19840101

REACTIONS (3)
  - LEUKAEMIA [None]
  - ORAL PAIN [None]
  - PERIODONTAL DISEASE [None]
